FAERS Safety Report 25352961 (Version 1)
Quarter: 2025Q2

REPORT INFORMATION
  Report Type: Spontaneous
  Country: US (occurrence: US)
  Receive Date: 20250523
  Receipt Date: 20250523
  Transmission Date: 20250716
  Serious: Yes (Other)
  Sender: PFIZER
  Company Number: US-PFIZER INC-202500106971

PATIENT
  Age: 46 Year
  Sex: Female

DRUGS (1)
  1. BOSULIF [Suspect]
     Active Substance: BOSUTINIB MONOHYDRATE
     Dosage: 400 MG (1 TABLET), DAILY
     Route: 048

REACTIONS (10)
  - Urticarial vasculitis [Unknown]
  - Systemic lupus erythematosus [Unknown]
  - Drug hypersensitivity [Unknown]
  - Nausea [Unknown]
  - Diarrhoea [Unknown]
  - Vomiting [Unknown]
  - Chills [Unknown]
  - Illness [Unknown]
  - Urticaria [Unknown]
  - Skin warm [Unknown]

NARRATIVE: CASE EVENT DATE: 20250501
